FAERS Safety Report 9383501 (Version 1)
Quarter: 2013Q3

REPORT INFORMATION
  Report Type: Spontaneous
  Country: US (occurrence: US)
  Receive Date: 20130704
  Receipt Date: 20130704
  Transmission Date: 20140515
  Serious: Yes (Disabling)
  Sender: FDA-Public Use
  Company Number: US-ASTRAZENECA-2013SE49331

PATIENT
  Age: 62 Year
  Sex: Female

DRUGS (2)
  1. CRESTOR [Suspect]
     Route: 048
     Dates: start: 20110916
  2. ALLEGRA [Concomitant]
     Indication: MULTIPLE ALLERGIES

REACTIONS (4)
  - Hypotonia [Unknown]
  - Sensory loss [Unknown]
  - Generalised oedema [Unknown]
  - Constipation [Unknown]
